FAERS Safety Report 12389794 (Version 1)
Quarter: 2016Q2

REPORT INFORMATION
  Report Type: Spontaneous
  Country: US (occurrence: US)
  Receive Date: 20160520
  Receipt Date: 20160520
  Transmission Date: 20160815
  Serious: Yes (Other)
  Sender: FDA-Public Use
  Company Number: US-MDT-ADR-2016-00225

PATIENT
  Age: 29 Year
  Sex: Male

DRUGS (6)
  1. PHENOBARBITAL. [Suspect]
     Active Substance: PHENOBARBITAL
  2. OMEPRAZOLE. [Suspect]
     Active Substance: OMEPRAZOLE
  3. GLYCOPYRROLATE. [Suspect]
     Active Substance: GLYCOPYRROLATE
  4. ALBUTEROL. [Suspect]
     Active Substance: ALBUTEROL
  5. BACLOFEN. [Suspect]
     Active Substance: BACLOFEN
     Route: 037
     Dates: start: 20150516, end: 20151014
  6. KEPPRA [Suspect]
     Active Substance: LEVETIRACETAM

REACTIONS (1)
  - Infection [Unknown]

NARRATIVE: CASE EVENT DATE: 201510
